FAERS Safety Report 10566890 (Version 1)
Quarter: 2014Q4

REPORT INFORMATION
  Report Type: Report from Study
  Country: US (occurrence: DE)
  Receive Date: 20141105
  Receipt Date: 20141105
  Transmission Date: 20150529
  Serious: Yes (Death, Other)
  Sender: FDA-Public Use
  Company Number: DE-CELGENE-DEU-2014105179

PATIENT

DRUGS (1)
  1. AZACITIDINE. [Suspect]
     Active Substance: AZACITIDINE
     Route: 041

REACTIONS (29)
  - Nervous system disorder [Fatal]
  - Administration site reaction [Fatal]
  - Skin disorder [Unknown]
  - Renal disorder [Fatal]
  - Dyspnoea [Fatal]
  - Toxicity to various agents [Unknown]
  - Lung infiltration [Fatal]
  - Leukopenia [Unknown]
  - Product quality issue [Unknown]
  - Acute myeloid leukaemia recurrent [Unknown]
  - Febrile neutropenia [Fatal]
  - Death [Fatal]
  - Injury [Fatal]
  - Metabolic disorder [Unknown]
  - Infection [Fatal]
  - Cardiac disorder [Fatal]
  - Pyrexia [Fatal]
  - Musculoskeletal disorder [Unknown]
  - Respiratory disorder [Fatal]
  - Electrocardiogram QT prolonged [Fatal]
  - Thrombocytopenia [Unknown]
  - Angiopathy [Fatal]
  - Neoplasm [Fatal]
  - Gastrointestinal disorder [Fatal]
  - Acute respiratory failure [Fatal]
  - Reproductive tract disorder [Unknown]
  - Blood disorder [Unknown]
  - Hepatobiliary disease [Unknown]
  - Mental disorder [Unknown]
